FAERS Safety Report 8369871-0 (Version None)
Quarter: 2012Q2

REPORT INFORMATION
  Report Type: 
  Country: None (occurrence: None)
  Receive Date: 20120518
  Receipt Date: 20120517
  Transmission Date: 20120825
  Serious: Yes (Hospitalization)
  Sender: FDA-Public Use
  Company Number: US-PFIZER INC-2012120564

PATIENT
  Sex: Female
  Weight: 77.098 kg

DRUGS (4)
  1. LYRICA [Suspect]
     Indication: PAIN
     Dosage: 75 MG, 3X/DAY
     Route: 048
     Dates: start: 20100701, end: 20110101
  2. LYRICA [Suspect]
     Indication: NERVE INJURY
  3. LYRICA [Suspect]
     Indication: PERONEAL NERVE PALSY
  4. NORCO [Concomitant]
     Indication: PAIN
     Dosage: UNK

REACTIONS (2)
  - GAIT DISTURBANCE [None]
  - UPPER LIMB FRACTURE [None]
